FAERS Safety Report 9160431 (Version 1)
Quarter: 2013Q1

REPORT INFORMATION
  Report Type: Report from Study
  Country: CA (occurrence: CA)
  Receive Date: 20130313
  Receipt Date: 20130313
  Transmission Date: 20140127
  Serious: Yes (Other)
  Sender: FDA-Public Use
  Company Number: CA-JNJFOC-20130300764

PATIENT
  Sex: Female
  Weight: 79 kg

DRUGS (2)
  1. REMICADE [Suspect]
     Indication: CROHN^S DISEASE
     Route: 042
     Dates: start: 20120504
  2. REMICADE [Suspect]
     Indication: CROHN^S DISEASE
     Dosage: 6 TH INFUSION
     Route: 042
     Dates: start: 20130102

REACTIONS (2)
  - Memory impairment [Unknown]
  - Rash pruritic [Recovering/Resolving]
